FAERS Safety Report 5606929-0 (Version None)
Quarter: 2008Q1

REPORT INFORMATION
  Report Type: 
  Country: None (occurrence: None)
  Receive Date: 20080129
  Receipt Date: 20080116
  Transmission Date: 20080703
  Serious: Yes (Disabling, Other)
  Sender: FDA-Public Use
  Company Number: US-ELI_LILLY_AND_COMPANY-US200607002932

PATIENT
  Sex: Female
  Weight: 80.272 kg

DRUGS (4)
  1. CYMBALTA [Suspect]
     Indication: PAIN
     Dosage: 60 MG, UNK
     Dates: start: 20060119, end: 20060310
  2. TRAZODONE HCL [Concomitant]
     Indication: INSOMNIA
     Dosage: 100 MG, EACH EVENING
     Dates: start: 20060306, end: 20060310
  3. ARTHROTEC [Concomitant]
     Indication: NECK PAIN
     Dosage: 1 D/F, EACH MORNING
     Dates: start: 20060101, end: 20060310
  4. COLACE [Concomitant]
     Dosage: 100 MG, EACH EVENING

REACTIONS (2)
  - CHOLESTASIS [None]
  - PARAESTHESIA [None]
